FAERS Safety Report 6064850-0 (Version None)
Quarter: 2009Q1

REPORT INFORMATION
  Report Type: 
  Country: None (occurrence: None)
  Receive Date: 20090204
  Receipt Date: 20090122
  Transmission Date: 20090719
  Serious: Yes (Other)
  Sender: FDA-Public Use
  Company Number: US-AVENTIS-200910019US

PATIENT
  Sex: Male
  Weight: 95.25 kg

DRUGS (4)
  1. DDAVP [Suspect]
     Indication: DIABETES INSIPIDUS
     Dosage: DOSE: 1 SPRAY
     Route: 045
  2. ZOCOR [Concomitant]
     Indication: LIPIDS INCREASED
     Dosage: DOSE: UNK
  3. ASPIRIN [Concomitant]
     Dosage: DOSE: UNK
  4. CRESTOR [Concomitant]
     Dosage: DOSE: UNK

REACTIONS (2)
  - MYOCARDIAL INFARCTION [None]
  - TYPE 2 DIABETES MELLITUS [None]
